FAERS Safety Report 4850778-8 (Version None)
Quarter: 2005Q4

REPORT INFORMATION
  Report Type: 
  Country: None (occurrence: None)
  Receive Date: 20051212
  Receipt Date: 20051130
  Transmission Date: 20060501
  Serious: Yes (Hospitalization)
  Sender: FDA-Public Use
  Company Number: NZ-AVENTIS-200514756EU

PATIENT
  Age: 61 Year
  Sex: Male

DRUGS (7)
  1. CLEXANE [Suspect]
     Indication: CHEST PAIN
  2. ASPIRIN [Concomitant]
     Indication: CHEST PAIN
  3. GLYCERINE TRINITRATE [Concomitant]
     Indication: CHEST PAIN
  4. OXYGEN [Concomitant]
     Indication: CHEST PAIN
  5. MORPHINE [Concomitant]
     Indication: CHEST PAIN
  6. WARFARIN SODIUM [Concomitant]
     Indication: CARDIAC FAILURE CONGESTIVE
  7. WARFARIN SODIUM [Concomitant]
     Indication: ATRIAL FIBRILLATION

REACTIONS (6)
  - ILEUS [None]
  - PARALYSIS FLACCID [None]
  - PNEUMONIA [None]
  - POST PROCEDURAL COMPLICATION [None]
  - PULMONARY OEDEMA [None]
  - SPINAL HAEMATOMA [None]
